FAERS Safety Report 14309727 (Version 2)
Quarter: 2018Q1

REPORT INFORMATION
  Report Type: Spontaneous
  Country: US (occurrence: US)
  Receive Date: 20171220
  Receipt Date: 20180223
  Transmission Date: 20180509
  Serious: Yes (Hospitalization, Other)
  Sender: FDA-Public Use
  Company Number: US-PFIZER INC-2017038607

PATIENT
  Age: 56 Year
  Sex: Male

DRUGS (2)
  1. TACROLIMUS. [Suspect]
     Active Substance: TACROLIMUS
     Indication: IMMUNOSUPPRESSANT DRUG THERAPY
     Dosage: 0.5 MG, 2X/DAY
     Route: 048
  2. TURMERIC [Interacting]
     Active Substance: HERBALS\TURMERIC
     Indication: LIVER DISORDER
     Dosage: UNK

REACTIONS (7)
  - Scrotal oedema [Recovering/Resolving]
  - Nephropathy toxic [Recovering/Resolving]
  - Abdominal distension [Unknown]
  - Oedema peripheral [Recovering/Resolving]
  - Drug interaction [Recovering/Resolving]
  - Acute kidney injury [Recovering/Resolving]
  - Food interaction [Recovering/Resolving]
